FAERS Safety Report 11156101 (Version 1)
Quarter: 2015Q2

REPORT INFORMATION
  Report Type: Spontaneous
  Country: US (occurrence: None)
  Receive Date: 20150601
  Receipt Date: 20150601
  Transmission Date: 20150821
  Serious: Yes (Other)
  Sender: FDA-Public Use
  Company Number: None

PATIENT
  Age: 56 Year
  Sex: Male
  Weight: 90.72 kg

DRUGS (3)
  1. PENICILLIN V POTASSIUM. [Suspect]
     Active Substance: PENICILLIN V POTASSIUM
     Indication: INFECTION
     Dosage: 500 MG TABLET, 30 TABLETS TOTAL, 2 AT START THEN 1 TABLET 4 TIMES DAILY UNTIL GONE, BY MOUTH
     Route: 048
     Dates: start: 20150428, end: 20150505
  2. MULTIVITAMIN [Suspect]
     Active Substance: VITAMINS
  3. COQ10 [Suspect]
     Active Substance: UBIDECARENONE

REACTIONS (4)
  - Skin discolouration [None]
  - Rash erythematous [None]
  - Rash [None]
  - Pruritus [None]

NARRATIVE: CASE EVENT DATE: 20150428
